FAERS Safety Report 8342709-3 (Version None)
Quarter: 2012Q2

REPORT INFORMATION
  Report Type: 
  Country: None (occurrence: None)
  Receive Date: 20120504
  Receipt Date: 20120423
  Transmission Date: 20120825
  Serious: Yes (Hospitalization, Other)
  Sender: FDA-Public Use
  Company Number: VAL_00748_2012

PATIENT
  Age: 37 Year
  Sex: Male

DRUGS (3)
  1. CARBAMAZEPINE [Suspect]
     Indication: PRODUCT USED FOR UNKNOWN INDICATION
     Dosage: (800 MG, /DAY)
  2. CLONAZEPAM [Concomitant]
  3. LAMOTRIGINE [Concomitant]

REACTIONS (13)
  - ESCHERICHIA URINARY TRACT INFECTION [None]
  - RASH ERYTHEMATOUS [None]
  - CONDITION AGGRAVATED [None]
  - URINARY TRACT INFECTION PSEUDOMONAL [None]
  - THROMBOCYTOPENIA [None]
  - BLOOD IMMUNOGLOBULIN M DECREASED [None]
  - PATHOGEN RESISTANCE [None]
  - HYDROCEPHALUS [None]
  - KLEBSIELLA INFECTION [None]
  - RASH MACULO-PAPULAR [None]
  - CONVULSION [None]
  - PLATELET COUNT DECREASED [None]
  - BLOOD IMMUNOGLOBULIN G DECREASED [None]
